FAERS Safety Report 5202051-6 (Version None)
Quarter: 2007Q1

REPORT INFORMATION
  Report Type: 
  Country: None (occurrence: None)
  Receive Date: 20070109
  Receipt Date: 20061227
  Transmission Date: 20070707
  Serious: Yes (Disabling, Other)
  Sender: FDA-Public Use
  Company Number: US-SP-2006-01061

PATIENT
  Age: 44 Year
  Sex: Female

DRUGS (9)
  1. DECAVAC [Suspect]
     Indication: IMMUNISATION
     Route: 030
     Dates: start: 20050830
  2. DECAVAC [Suspect]
     Route: 030
     Dates: start: 20050830
  3. TUBERSOL [Suspect]
     Indication: IMMUNISATION
     Route: 023
     Dates: start: 20050830
  4. TUBERSOL [Suspect]
     Route: 023
     Dates: start: 20050830
  5. ENGERIX-B [Suspect]
     Indication: IMMUNISATION
     Route: 030
     Dates: start: 20050830
  6. NEURONTIN [Concomitant]
     Dosage: 3 TIMES/DAY
  7. AMITRIPTYLINE HCL [Concomitant]
     Dosage: UP TO 5/DAY
  8. HYDROCODONE BITARTRATE [Concomitant]
     Dosage: PRN
  9. HERBAL SUPPLEMENTS [Concomitant]

REACTIONS (19)
  - ABDOMINAL PAIN LOWER [None]
  - COMPLEX REGIONAL PAIN SYNDROME [None]
  - CONDITION AGGRAVATED [None]
  - DECREASED APPETITE [None]
  - FATIGUE [None]
  - HEADACHE [None]
  - HEPATIC FUNCTION ABNORMAL [None]
  - HYPERACUSIS [None]
  - INJECTION SITE IRRITATION [None]
  - INJECTION SITE PAIN [None]
  - INJECTION SITE RASH [None]
  - MOBILITY DECREASED [None]
  - MUSCULAR WEAKNESS [None]
  - NAUSEA [None]
  - PAIN [None]
  - PHOTOPHOBIA [None]
  - SWELLING FACE [None]
  - TRIGEMINAL NEURALGIA [None]
  - WEIGHT DECREASED [None]
